FAERS Safety Report 19386783 (Version 1)
Quarter: 2021Q2

REPORT INFORMATION
  Report Type: Spontaneous
  Country: US (occurrence: US)
  Receive Date: 20210607
  Receipt Date: 20210607
  Transmission Date: 20210717
  Serious: Yes (Other)
  Sender: FDA-Public Use
  Company Number: US-PFIZER INC-2021605546

PATIENT

DRUGS (2)
  1. HUMIRA [Suspect]
     Active Substance: ADALIMUMAB
     Indication: RHEUMATOID ARTHRITIS
     Dosage: 2 DOSES
     Route: 058
  2. XELJANZ [Suspect]
     Active Substance: TOFACITINIB CITRATE
     Indication: RHEUMATOID ARTHRITIS
     Dosage: 5 MG, 2X/DAY
     Dates: start: 20210410

REACTIONS (8)
  - Hypertension [Unknown]
  - Discouragement [Unknown]
  - Systemic lupus erythematosus [Unknown]
  - Fibromyalgia [Unknown]
  - Depression [Not Recovered/Not Resolved]
  - Pulmonary hypertension [Unknown]
  - Rash [Unknown]
  - Urticaria [Unknown]
